FAERS Safety Report 24980949 (Version 1)
Quarter: 2025Q1

REPORT INFORMATION
  Report Type: Spontaneous
  Country: US (occurrence: None)
  Receive Date: 20250217
  Receipt Date: 20250217
  Transmission Date: 20250408
  Serious: Yes (Hospitalization)
  Sender: FDA-CTU
  Company Number: None

PATIENT
  Sex: Female

DRUGS (10)
  1. AMBRISENTAN [Suspect]
     Active Substance: AMBRISENTAN
     Indication: Pulmonary hypertension
     Route: 048
     Dates: start: 20240222
  2. ADEMPAS [Concomitant]
     Active Substance: RIOCIGUAT
  3. ALBUTEROL [Concomitant]
     Active Substance: ALBUTEROL
  4. AMBRISENTAN [Concomitant]
     Active Substance: AMBRISENTAN
  5. BUPROPION [Concomitant]
     Active Substance: BUPROPION
  6. DICLOFENAC [Concomitant]
     Active Substance: DICLOFENAC
  7. FERROUS SULFATE [Concomitant]
     Active Substance: FERROUS SULFATE
  8. IBUPROFEN [Concomitant]
     Active Substance: IBUPROFEN
  9. LEVOTHYROXINE [Concomitant]
     Active Substance: LEVOTHYROXINE
  10. LOPERAMIDE [Concomitant]
     Active Substance: LOPERAMIDE

REACTIONS (1)
  - Headache [None]
